FAERS Safety Report 21199462 (Version 1)
Quarter: 2022Q3

REPORT INFORMATION
  Report Type: Report from Study
  Country: US (occurrence: US)
  Receive Date: 20220811
  Receipt Date: 20220811
  Transmission Date: 20221027
  Serious: Yes (Hospitalization, Other)
  Sender: FDA-Public Use
  Company Number: US-ABBVIE-22K-163-4499079-00

PATIENT
  Age: 26 Year
  Sex: Male
  Weight: 91.708 kg

DRUGS (3)
  1. HUMIRA [Suspect]
     Active Substance: ADALIMUMAB
     Indication: Colitis ulcerative
     Route: 058
     Dates: start: 201703, end: 201811
  2. HUMIRA [Suspect]
     Active Substance: ADALIMUMAB
     Route: 058
     Dates: start: 201902
  3. IBUPROFEN [Suspect]
     Active Substance: IBUPROFEN
     Indication: Product used for unknown indication
     Route: 065

REACTIONS (13)
  - Skin disorder [Recovered/Resolved]
  - Sepsis [Recovered/Resolved]
  - Mucous stools [Recovered/Resolved]
  - Frequent bowel movements [Recovered/Resolved]
  - Attention deficit hyperactivity disorder [Unknown]
  - Pharyngeal swelling [Recovered/Resolved]
  - Malaise [Unknown]
  - Ear infection [Unknown]
  - Influenza [Unknown]
  - Pharyngitis [Recovered/Resolved]
  - Rhinitis [Recovered/Resolved]
  - Colitis ulcerative [Recovered/Resolved]
  - Abdominal pain upper [Recovered/Resolved]

NARRATIVE: CASE EVENT DATE: 20181201
